FAERS Safety Report 9396157 (Version 1)
Quarter: 2013Q3

REPORT INFORMATION
  Report Type: Spontaneous
  Country: EG (occurrence: EG)
  Receive Date: 20130711
  Receipt Date: 20130711
  Transmission Date: 20140515
  Serious: No
  Sender: FDA-Public Use
  Company Number: EG-B.I. PHARMACEUTICALS,INC./RIDGEFIELD-2013-BI-18577AE

PATIENT
  Age: 58 Year
  Sex: Female

DRUGS (5)
  1. PRADAXA [Suspect]
     Indication: HIP ARTHROPLASTY
     Dosage: 220 MG
     Route: 048
     Dates: start: 20130620, end: 20130624
  2. TIENAM [Concomitant]
  3. CONTROLOC [Concomitant]
  4. ATROVENT [Concomitant]
  5. PERFALGAN [Concomitant]

REACTIONS (1)
  - Haemorrhage [Not Recovered/Not Resolved]
